FAERS Safety Report 14919543 (Version 5)
Quarter: 2018Q4

REPORT INFORMATION
  Report Type: Report from Study
  Country: JP (occurrence: JP)
  Receive Date: 20180521
  Receipt Date: 20181031
  Transmission Date: 20190204
  Serious: Yes (Hospitalization)
  Sender: FDA-Public Use
  Company Number: JP-ROCHE-2124905

PATIENT
  Age: 48 Year
  Sex: Female

DRUGS (21)
  1. GASTER [Concomitant]
     Active Substance: FAMOTIDINE
     Indication: PREMEDICATION
     Route: 065
     Dates: start: 20180502, end: 20180502
  2. DERMOSOL-G [Concomitant]
     Indication: PRURITUS
     Route: 061
     Dates: start: 20180509, end: 20180823
  3. ATEZOLIZUMAB. [Suspect]
     Active Substance: ATEZOLIZUMAB
     Indication: OVARIAN CANCER
     Dosage: DATE OF MOST RECENT DOSE OF BLINDED ATEZOLIZUMAB PRIOR TO ADVERSE EVENT ONSET  02/MAY/2018
     Route: 042
     Dates: start: 20180502
  4. ATARAX-P [Concomitant]
     Active Substance: HYDROXYZINE HYDROCHLORIDE
     Indication: PRURITUS
     Route: 065
     Dates: start: 20180515, end: 20180515
  5. PRIMPERAN [Concomitant]
     Active Substance: METOCLOPRAMIDE HYDROCHLORIDE
     Indication: NAUSEA
     Route: 065
     Dates: start: 20180503
  6. SENNOSIDE [Concomitant]
     Active Substance: SENNOSIDES
     Indication: CONSTIPATION
  7. URSO [Concomitant]
     Active Substance: URSODIOL
     Indication: HEPATIC ENZYME INCREASED
     Route: 065
     Dates: start: 20180523, end: 20180606
  8. RANAKEIN [Concomitant]
     Indication: PRURITUS
     Route: 065
     Dates: start: 20180503, end: 20180509
  9. HUSCODE [Concomitant]
     Active Substance: CHLORPHENIRAMINE MALEATE\DIHYDROCODEINE PHOSPHATE\METHYLEPHEDRINE HYDROCHLORIDE, DL-
     Indication: NASOPHARYNGITIS
     Route: 065
     Dates: start: 20180425, end: 20180502
  10. STRONGER NEO-MINOPHAGEN C (JAPAN) [Concomitant]
     Indication: HEPATIC ENZYME INCREASED
     Route: 065
     Dates: start: 20180521, end: 20180523
  11. PACLITAXEL. [Suspect]
     Active Substance: PACLITAXEL
     Indication: OVARIAN CANCER
     Dosage: DATE OF MOST RECENT DOSE OF PACLITAXEL PRIOR TO ADVERSE EVENT ONSET 02/MAY/2018
     Route: 042
     Dates: start: 20180502
  12. CIPROXAN [Concomitant]
     Active Substance: CIPROFLOXACIN
     Indication: UPPER RESPIRATORY TRACT INFECTION
     Route: 065
     Dates: start: 20180606, end: 20180611
  13. CARBOPLATIN. [Suspect]
     Active Substance: CARBOPLATIN
     Indication: OVARIAN CANCER
     Dosage: DATE OF MOST RECENT DOSE OF CARBOPLATIN PRIOR TO ADVERSE EVENT ONSET 02/MAY/2018
     Route: 042
     Dates: start: 20180502
  14. MUCODYNE-DS [Concomitant]
     Active Substance: CARBOCYSTEINE
     Indication: NASOPHARYNGITIS
     Route: 065
     Dates: start: 20180425, end: 20180502
  15. RESTAMIN KOWA [Concomitant]
     Indication: PREMEDICATION
     Route: 065
     Dates: start: 20180502, end: 20180502
  16. DEXART [Concomitant]
     Active Substance: DEXAMETHASONE SODIUM PHOSPHATE
     Indication: PREMEDICATION
     Route: 042
     Dates: start: 20180502, end: 20180502
  17. PL [Concomitant]
     Active Substance: ACETAMINOPHEN\CAFFEINE\PROMETHAZINE\SALICYLAMIDE
     Indication: UPPER RESPIRATORY TRACT INFECTION
     Route: 065
     Dates: start: 20180606, end: 20180627
  18. MAGNESIUM OXIDE. [Concomitant]
     Active Substance: MAGNESIUM OXIDE
     Indication: CONSTIPATION
     Route: 065
     Dates: start: 20180501
  19. ALOXI [Concomitant]
     Active Substance: PALONOSETRON HYDROCHLORIDE
     Indication: PREMEDICATION
     Route: 065
     Dates: start: 20180502, end: 20180502
  20. OLOPATADINE HYDROCHLORIDE. [Concomitant]
     Active Substance: OLOPATADINE HYDROCHLORIDE
     Indication: PRURITUS
     Route: 065
     Dates: start: 20180509, end: 20180822
  21. BEVACIZUMAB. [Suspect]
     Active Substance: BEVACIZUMAB
     Indication: OVARIAN CANCER
     Dosage: DATE OF MOST RECENT DOSE OF BEVACIZUMAB PRIOR TO ADVERSE EVENT ONSET 02/MAY/2018
     Route: 042
     Dates: start: 20180502

REACTIONS (1)
  - Febrile neutropenia [Recovered/Resolved]

NARRATIVE: CASE EVENT DATE: 20180514
